FAERS Safety Report 6128499-3 (Version None)
Quarter: 2009Q1

REPORT INFORMATION
  Report Type: 
  Country: None (occurrence: None)
  Receive Date: 20090319
  Receipt Date: 20090305
  Transmission Date: 20090719
  Serious: Yes (Hospitalization)
  Sender: FDA-Public Use
  Company Number: 02100-JPN-06-0351

PATIENT
  Age: 57 Year
  Sex: Male

DRUGS (23)
  1. PLETAL [Suspect]
     Indication: CEREBRAL INFARCTION
     Dosage: 100 MG, BID ORAL
     Route: 048
     Dates: start: 20060403, end: 20060629
  2. PLETAL [Suspect]
     Indication: CEREBRAL INFARCTION
     Dosage: 100 MG, BID ORAL
     Route: 048
     Dates: start: 20060707
  3. FOLIC ACID (FOLIC ACID) UNKNOWN [Concomitant]
  4. ASPIRIN [Concomitant]
  5. BENFOTIAMINE (BENFOTIAMINE) UNKNOWN [Concomitant]
  6. CYANOCOBALAMINE (CYANOCOBALAMINE) UNKNOWN [Concomitant]
  7. PYRIDOXINE HYDROCHLORIDE (PYRIDOXINE HYDROCHLORIDE) UNKNOWN [Concomitant]
  8. VALSARTAN [Concomitant]
  9. ACETAMINOPHEN [Concomitant]
  10. CAFFEINE (CAFFEINE) UNKNOWN [Concomitant]
  11. CHLORPHENIRAMINE MALEATE (CHLORPHENAMINE MALEATE) UNKNOWN [Concomitant]
  12. CLOPERASTINE HYDROCHLORIDE (CLOPERASTINE HYDROCHLORIDE) UNKNOWN [Concomitant]
  13. DL-METHYLEPHEDRINE HYDROCHLORIDE (DL-METHYLEPHEDRINE HYDROCHLORIDE) UN [Concomitant]
  14. SERRATIOPEPTIDASE 9SERRATIOPEPTIDASE) UNKNOWN [Concomitant]
  15. FENOTEROL HYDROBROMIDE (FENOTEROL HYDROBROMIDE) UNKNOWN [Concomitant]
  16. LETOSTEINE (LETOSTEINE) UNKNOWN [Concomitant]
  17. STREPTODORNASE (STREPTODORNASE) UNKNOWN [Concomitant]
  18. STREPTOKINASE (STREPTOKINASE) UNKNOWN [Concomitant]
  19. CLARITHROMYCIN [Concomitant]
  20. BEPOTASTINE BESILATE (BEPOTASTINE BESILATE) UNKNOWN [Concomitant]
  21. DIHYDROCODEINE TARTRATE (DIHYDROCODEINE TARTRATE) UNKNOWN [Concomitant]
  22. GUAIFENESIN (GUAIFENESIN) UNKNOWN [Concomitant]
  23. METHYLEPHEDRINE HYDROCHLORIDE (METHYLEPHEDRINE HYDROCHLORIDE) UNKNOWN [Concomitant]

REACTIONS (5)
  - DEAFNESS UNILATERAL [None]
  - DISEASE PROGRESSION [None]
  - MASTOIDITIS [None]
  - OTITIS MEDIA CHRONIC [None]
  - UPPER RESPIRATORY TRACT INFECTION [None]
